FAERS Safety Report 6235452-8 (Version None)
Quarter: 2009Q2

REPORT INFORMATION
  Report Type: 
  Country: None (occurrence: None)
  Receive Date: 20090618
  Receipt Date: 20090422
  Transmission Date: 20091009
  Serious: No
  Sender: FDA-Public Use
  Company Number: US-ASTRAZENECA-2009UW10367

PATIENT
  Sex: Female

DRUGS (1)
  1. RHINOCORT [Suspect]
     Indication: MULTIPLE ALLERGIES
     Route: 045

REACTIONS (3)
  - APATHY [None]
  - NERVOUSNESS [None]
  - RESTLESSNESS [None]
